FAERS Safety Report 16940112 (Version 1)
Quarter: 2019Q4

REPORT INFORMATION
  Report Type: Spontaneous
  Country: US (occurrence: US)
  Receive Date: 20191021
  Receipt Date: 20191021
  Transmission Date: 20200122
  Serious: Yes (Other)
  Sender: FDA-Public Use
  Company Number: US-BIOVITRUM-2019US1401

PATIENT
  Age: 12 Year
  Sex: Female
  Weight: 50 kg

DRUGS (2)
  1. GAMIFANT [Suspect]
     Active Substance: EMAPALUMAB-LZSG
     Dosage: INCREASED TO 3 MG/KG
  2. GAMIFANT [Suspect]
     Active Substance: EMAPALUMAB-LZSG
     Indication: HAEMOPHAGOCYTIC LYMPHOHISTIOCYTOSIS
     Dates: start: 20190528

REACTIONS (10)
  - Thrombocytopenia [Unknown]
  - Platelet disorder [Not Recovered/Not Resolved]
  - Anaemia [Unknown]
  - Natural killer T cell count increased [Unknown]
  - Pyrexia [Unknown]
  - Mean cell volume increased [Not Recovered/Not Resolved]
  - Lymphoproliferative disorder [Unknown]
  - Full blood count increased [Not Recovered/Not Resolved]
  - Nucleated red cells [Not Recovered/Not Resolved]
  - Granulocytosis [Not Recovered/Not Resolved]

NARRATIVE: CASE EVENT DATE: 20190610
